FAERS Safety Report 25539572 (Version 2)
Quarter: 2025Q3

REPORT INFORMATION
  Report Type: Spontaneous
  Country: US (occurrence: US)
  Receive Date: 20250710
  Receipt Date: 20250813
  Transmission Date: 20251020
  Serious: No
  Sender: LUPIN
  Company Number: US-LUPIN PHARMACEUTICALS INC.-2025-05948

PATIENT

DRUGS (2)
  1. TOLVAPTAN [Suspect]
     Active Substance: TOLVAPTAN
     Indication: Chronic kidney disease
     Dosage: 1 DOSAGE FORM, QD (EARLY MORNING)
  2. TOLVAPTAN [Suspect]
     Active Substance: TOLVAPTAN
     Indication: Chronic kidney disease
     Dosage: 1 DOSAGE FORM, QD (8 HOURS LATER)

REACTIONS (10)
  - Rash [Unknown]
  - Dry mouth [Unknown]
  - Dry skin [Unknown]
  - Fatigue [Unknown]
  - Heart rate irregular [Unknown]
  - Pollakiuria [Unknown]
  - Pruritus [Unknown]
  - Decreased appetite [Unknown]
  - Thirst [Unknown]
  - Product dose omission issue [Unknown]
